FAERS Safety Report 4773053-9 (Version None)
Quarter: 2005Q3

REPORT INFORMATION
  Report Type: 
  Country: None (occurrence: None)
  Receive Date: 20050916
  Receipt Date: 20050825
  Transmission Date: 20060218
  Serious: Yes (Hospitalization, Other)
  Sender: FDA-Public Use
  Company Number: US_010464487

PATIENT
  Age: 39 Year
  Sex: Male
  Weight: 75 kg

DRUGS (5)
  1. HUMULIN R [Suspect]
     Indication: DIABETES MELLITUS
     Dosage: 15 U DAY
     Dates: start: 19930101, end: 19940101
  2. HUMULIN N [Suspect]
     Indication: DIABETES MELLITUS
     Dosage: 24 U DAY
     Dates: start: 19930101, end: 19940101
  3. HUMULIN L [Suspect]
     Dates: start: 19940101
  4. REGULAR ILETIN II [Suspect]
     Indication: DIABETES MELLITUS
     Dosage: 10 U/2 DAY
  5. NPH ILETIN I (BEEF-PORK) [Suspect]
     Indication: DIABETES MELLITUS
     Dosage: 30 U DAY

REACTIONS (4)
  - ANOREXIA [None]
  - CONVULSION [None]
  - HYPOGLYCAEMIA [None]
  - LOSS OF CONSCIOUSNESS [None]
